FAERS Safety Report 8518955 (Version 6)
Quarter: 2013Q1

REPORT INFORMATION
  Report Type: Spontaneous
  Country: US (occurrence: US)
  Receive Date: 20120418
  Receipt Date: 20130118
  Transmission Date: 20140127
  Serious: Yes (Other)
  Sender: FDA-Public Use
  Company Number: US-PFIZER INC-2012092264

PATIENT
  Sex: Female

DRUGS (2)
  1. LATANOPROST [Suspect]
     Indication: GLAUCOMA
     Dosage: UNK, !X/DAY
     Route: 047
     Dates: start: 20120215
  2. ALLERGAN [Suspect]
     Dosage: UNK
     Route: 047

REACTIONS (6)
  - Lung infection [Unknown]
  - Hypersensitivity [Not Recovered/Not Resolved]
  - Upper respiratory tract infection [Recovered/Resolved]
  - Nausea [Not Recovered/Not Resolved]
  - Dry eye [Unknown]
  - Rhinorrhoea [Unknown]
